FAERS Safety Report 9347786 (Version 1)
Quarter: 2013Q2

REPORT INFORMATION
  Report Type: Spontaneous
  Country: US (occurrence: US)
  Receive Date: 20130614
  Receipt Date: 20130614
  Transmission Date: 20140414
  Serious: No
  Sender: FDA-Public Use
  Company Number: US-PFIZER INC-2013177124

PATIENT
  Age: 74 Year
  Sex: Female
  Weight: 64 kg

DRUGS (7)
  1. LIPITOR [Suspect]
     Indication: BLOOD CHOLESTEROL INCREASED
     Dosage: 80 MG, UNK
     Dates: start: 201212, end: 20130321
  2. NIASPAN [Suspect]
     Indication: BLOOD CHOLESTEROL INCREASED
     Dosage: 1000 MG, UNK
     Dates: start: 201212
  3. NEURONTIN [Concomitant]
     Indication: HERPES ZOSTER
     Dosage: 600 MG, UNK
  4. WELLBUTRIN [Concomitant]
     Dosage: 150 MG, UNK
  5. ASA [Concomitant]
     Dosage: 81 MG, UNK
  6. SPIRIVA [Concomitant]
     Dosage: UNK
     Route: 055
  7. HYDROCODONE [Concomitant]
     Dosage: UNK

REACTIONS (2)
  - Myalgia [Recovering/Resolving]
  - Myalgia [Unknown]
